FAERS Safety Report 17588138 (Version 1)
Quarter: 2020Q1

REPORT INFORMATION
  Report Type: Report from Study
  Country: US (occurrence: US)
  Receive Date: 20200326
  Receipt Date: 20200326
  Transmission Date: 20200409
  Serious: No
  Sender: FDA-Public Use
  Company Number: NVSC2020US080107

PATIENT
  Age: 56 Year
  Sex: Male

DRUGS (1)
  1. ENTRESTO [Suspect]
     Active Substance: SACUBITRIL\VALSARTAN
     Indication: CARDIAC FAILURE
     Dosage: 50 MG, BID (26 MG SACUBITRIL/24MG VALSARTAN)
     Route: 048
     Dates: start: 202003

REACTIONS (2)
  - Post procedural complication [Unknown]
  - Joint swelling [Unknown]

NARRATIVE: CASE EVENT DATE: 20200313
